FAERS Safety Report 10042496 (Version 1)
Quarter: 2014Q1

REPORT INFORMATION
  Report Type: Spontaneous
  Country: GB (occurrence: GB)
  Receive Date: 20140327
  Receipt Date: 20140327
  Transmission Date: 20141002
  Serious: Yes (Other)
  Sender: FDA-Public Use
  Company Number: GB-US-EMD SERONO, INC.-7278006

PATIENT
  Age: 70 Year
  Sex: Female

DRUGS (1)
  1. SAIZEN [Suspect]
     Indication: HYPOPITUITARISM

REACTIONS (3)
  - Arthropathy [Unknown]
  - Drug dose omission [Unknown]
  - Device malfunction [Unknown]
